FAERS Safety Report 15648536 (Version 2)
Quarter: 2018Q4

REPORT INFORMATION
  Report Type: Spontaneous
  Country: BR (occurrence: BR)
  Receive Date: 20181122
  Receipt Date: 20181127
  Transmission Date: 20190205
  Serious: Yes (Life-Threatening, Hospitalization, Other)
  Sender: FDA-Public Use
  Company Number: BR-PFIZER INC-2018476631

PATIENT
  Age: 27 Year
  Sex: Male

DRUGS (4)
  1. ALGESTONE ACETOPHENIDE [Suspect]
     Active Substance: ALGESTONE ACETOPHENIDE
     Indication: FEMINISATION ACQUIRED
     Dosage: 115.9 MG, UNK, EVERY 15 DAYS
  2. ESTRADIOL. [Suspect]
     Active Substance: ESTRADIOL
     Indication: FEMINISATION ACQUIRED
     Dosage: 7.1 MG, UNK ,EVERY 15 DAYS
  3. MEDROXYPROGESTERONE ACETATE. [Suspect]
     Active Substance: MEDROXYPROGESTERONE ACETATE
     Dosage: 50 MG, DAILY
  4. MEDROXYPROGESTERONE ACETATE. [Suspect]
     Active Substance: MEDROXYPROGESTERONE ACETATE
     Indication: FEMINISATION ACQUIRED
     Dosage: 50 MG, 1X/DAY

REACTIONS (1)
  - Lupus nephritis [Recovered/Resolved]
